FAERS Safety Report 7973532-7 (Version None)
Quarter: 2011Q4

REPORT INFORMATION
  Report Type: 
  Country: None (occurrence: None)
  Receive Date: 20111209
  Receipt Date: 20111125
  Transmission Date: 20120403
  Serious: Yes (Hospitalization)
  Sender: FDA-Public Use
  Company Number: 2011AP002848

PATIENT
  Age: 42 Year
  Sex: Female

DRUGS (10)
  1. FLECAINIDE ACETATE [Suspect]
     Indication: ATRIAL FIBRILLATION
     Dosage: 100 MG; QD; PO
     Route: 048
  2. DOXAZOSIN MESYLATE [Concomitant]
  3. ROCURONIUM BROMIDE [Concomitant]
  4. PROPOFOL [Concomitant]
  5. PROPRANOLOL [Concomitant]
  6. PROPOFOL [Concomitant]
  7. SUFENTANIL CITRATE [Concomitant]
  8. ACENOCOUMAROL (ACENOCOUMAROL) [Concomitant]
  9. SUFENTANIL (SUFENTANTIL) [Concomitant]
  10. ISOFLURANE [Concomitant]

REACTIONS (6)
  - HYPOMAGNESAEMIA [None]
  - SUPRAVENTRICULAR TACHYCARDIA [None]
  - TORSADE DE POINTES [None]
  - HYPERTENSION [None]
  - ARRHYTHMIA [None]
  - SINUS BRADYCARDIA [None]
